FAERS Safety Report 9213626 (Version 2)
Quarter: 2013Q2

REPORT INFORMATION
  Report Type: Spontaneous
  Country: US (occurrence: US)
  Receive Date: 20130405
  Receipt Date: 20130531
  Transmission Date: 20140414
  Serious: No
  Sender: FDA-Public Use
  Company Number: US-009507513-1304USA002252

PATIENT
  Age: 68 Year
  Sex: Female

DRUGS (2)
  1. AZASITE [Suspect]
     Indication: BLEPHARITIS
     Dosage: 1 DROP IN EACH EYE ONCE DAILY
     Route: 061
     Dates: start: 20130326
  2. AZASITE [Suspect]
     Dosage: UNK
     Dates: start: 201205

REACTIONS (4)
  - Drug prescribing error [Unknown]
  - Incorrect dose administered [Unknown]
  - Product quality issue [Unknown]
  - No adverse event [Unknown]
